FAERS Safety Report 17689718 (Version 1)
Quarter: 2020Q2

REPORT INFORMATION
  Report Type: Spontaneous
  Country: US (occurrence: US)
  Receive Date: 20200421
  Receipt Date: 20200421
  Transmission Date: 20200714
  Serious: No
  Sender: FDA-Public Use
  Company Number: None

PATIENT
  Age: 67 Year
  Sex: Female
  Weight: 63 kg

DRUGS (8)
  1. VITAMIN D [Concomitant]
     Active Substance: VITAMIN D NOS
  2. ALBUTEROL SULFATE INHALATION AEROSOL HFA [Suspect]
     Active Substance: ALBUTEROL SULFATE
     Indication: CHRONIC OBSTRUCTIVE PULMONARY DISEASE
     Dosage: ?          QUANTITY:2 PUFF(S);?
     Route: 048
  3. VITAMIN C [Concomitant]
     Active Substance: ASCORBIC ACID
  4. DILTIAZEM. [Concomitant]
     Active Substance: DILTIAZEM
  5. ZINC. [Concomitant]
     Active Substance: ZINC
  6. ISOSORBIDE. [Suspect]
     Active Substance: ISOSORBIDE
  7. LOSARTAN. [Concomitant]
     Active Substance: LOSARTAN
  8. MULTIVITAMIN [Concomitant]
     Active Substance: VITAMINS

REACTIONS (6)
  - Throat irritation [None]
  - Glossodynia [None]
  - Wheezing [None]
  - Dyspnoea [None]
  - Product substitution issue [None]
  - Product taste abnormal [None]

NARRATIVE: CASE EVENT DATE: 20200420
